FAERS Safety Report 13617581 (Version 1)
Quarter: 2017Q2

REPORT INFORMATION
  Report Type: Spontaneous
  Country: US (occurrence: US)
  Receive Date: 20170606
  Receipt Date: 20170606
  Transmission Date: 20170830
  Serious: Yes (Other)
  Sender: FDA-Public Use
  Company Number: US-SA-2017SA042373

PATIENT
  Age: 55 Year
  Sex: Male
  Weight: 104.1 kg

DRUGS (13)
  1. LANTUS [Suspect]
     Active Substance: INSULIN GLARGINE
     Indication: TYPE 2 DIABETES MELLITUS
     Route: 058
  2. ACETAMINOPHEN. [Concomitant]
     Active Substance: ACETAMINOPHEN
     Dosage: Q4 HRS PRN
  3. PAROXETINE. [Concomitant]
     Active Substance: PAROXETINE
  4. BACLOFEN. [Concomitant]
     Active Substance: BACLOFEN
     Dosage: TID AS NEEDED
  5. EDARBI [Concomitant]
     Active Substance: AZILSARTAN KAMEDOXOMIL
  6. LEVETIRACETAM. [Concomitant]
     Active Substance: LEVETIRACETAM
  7. ROSUVASTATIN. [Concomitant]
     Active Substance: ROSUVASTATIN
  8. DILTIAZEM. [Concomitant]
     Active Substance: DILTIAZEM
  9. IBUPROFEN. [Concomitant]
     Active Substance: IBUPROFEN
  10. DULOXETINE. [Concomitant]
     Active Substance: DULOXETINE
  11. METFORMIN [Concomitant]
     Active Substance: METFORMIN HYDROCHLORIDE
  12. LANTUS [Suspect]
     Active Substance: INSULIN GLARGINE
     Indication: TYPE 2 DIABETES MELLITUS
     Dosage: DOSE:35 UNIT(S)
     Route: 058
     Dates: start: 20150223
  13. ASPIRIN. [Concomitant]
     Active Substance: ASPIRIN

REACTIONS (4)
  - Fatigue [Unknown]
  - Hypoglycaemia [Recovered/Resolved]
  - Tremor [Recovered/Resolved]
  - Abdominal discomfort [Unknown]

NARRATIVE: CASE EVENT DATE: 20170215
